FAERS Safety Report 10507594 (Version 3)
Quarter: 2017Q3

REPORT INFORMATION
  Report Type: Spontaneous
  Country: US (occurrence: US)
  Receive Date: 20141009
  Receipt Date: 20170911
  Transmission Date: 20171127
  Serious: No
  Sender: FDA-Public Use
  Company Number: US-PFIZER INC-2014276772

PATIENT
  Age: 83 Year
  Sex: Female

DRUGS (3)
  1. LYRICA [Suspect]
     Active Substance: PREGABALIN
     Indication: SENSORY NEUROPATHY HEREDITARY
     Dosage: 75 MG, 1CAPSULE(S) TWICE A DAY
     Route: 048
  2. CIPRO [Suspect]
     Active Substance: CIPROFLOXACIN HYDROCHLORIDE
     Dosage: UNK
  3. LYRICA [Suspect]
     Active Substance: PREGABALIN
     Indication: NEUROPATHY PERIPHERAL
     Dosage: 75 MG, 3X/DAY (1 CAPSULE THREE TIMES A DAY )
     Route: 048

REACTIONS (3)
  - Drug hypersensitivity [Unknown]
  - Drug intolerance [Unknown]
  - Product use in unapproved indication [Unknown]
